FAERS Safety Report 8998398 (Version 2)
Quarter: 2013Q1

REPORT INFORMATION
  Report Type: Report from Study
  Country: DE (occurrence: DE)
  Receive Date: 20130103
  Receipt Date: 20130329
  Transmission Date: 20140127
  Serious: Yes (Hospitalization)
  Sender: FDA-Public Use
  Company Number: DE-PFIZER INC-2012330089

PATIENT
  Age: 47 Year
  Sex: Male
  Weight: 97 kg

DRUGS (16)
  1. IRINOTECAN HCL [Suspect]
     Indication: GLIOBLASTOMA
     Dosage: 270 MG, CYCLIC, ONCE EVERY 2 WEEKS
     Route: 042
     Dates: start: 20120210, end: 20120309
  2. IRINOTECAN HCL [Suspect]
     Dosage: EVERY 2 WEEKS
     Route: 042
     Dates: start: 20120405
  3. BEVACIZUMAB [Suspect]
     Indication: GLIOBLASTOMA
     Dosage: 930 MG, CYCLIC, ONCE EVERY 2 WEEKS
     Route: 042
     Dates: start: 20111215, end: 20120309
  4. BEVACIZUMAB [Suspect]
     Dosage: EVRY 2 WEEKS
     Route: 042
     Dates: start: 20120405
  5. LEVETIRACETAM [Concomitant]
     Dosage: 1000/2
     Dates: start: 20111118, end: 20111222
  6. LEVETIRACETAM [Concomitant]
     Dosage: 1500 MG/2, UNK
     Dates: start: 20111222, end: 2012
  7. L-THYROXIN [Concomitant]
     Dosage: 200 MG/1, UNK
     Dates: start: 20111118
  8. SEVIKAR [Concomitant]
     Dosage: 37.5 MG/1, UNK
     Dates: start: 20120106
  9. HYDROCHLOROTHIAZIDE [Concomitant]
     Dosage: 12.5 MG /1, UNK
     Dates: start: 20120127, end: 2012
  10. DEXAMETHASON [Concomitant]
     Dosage: 8 MG /1, UNK
     Dates: start: 20120210, end: 20120214
  11. DEXAMETHASON [Concomitant]
     Dosage: 8 MG /1, UNK
     Dates: start: 20120407, end: 20120409
  12. DEXAMETHASON [Concomitant]
     Dosage: 8MG, UNK
     Dates: start: 20120210, end: 20121122
  13. OMEPRAZOL [Concomitant]
     Dosage: 40 MG / 1, UNK
     Dates: start: 20120127, end: 2012
  14. TALVOSILEN FORTE [Concomitant]
     Dosage: 2000/4
     Dates: start: 201203, end: 2012
  15. NEXIUM [Concomitant]
     Dosage: 40/1, UNK
     Dates: start: 201203, end: 2012
  16. CLEXANE [Concomitant]
     Dosage: 0.4/1, UNK
     Dates: start: 201203, end: 201203

REACTIONS (1)
  - Wound infection [Recovered/Resolved]
